FAERS Safety Report 10670500 (Version 1)
Quarter: 2014Q4

REPORT INFORMATION
  Report Type: Spontaneous
  Country: HR (occurrence: HR)
  Receive Date: 20141223
  Receipt Date: 20141223
  Transmission Date: 20150529
  Serious: Yes (Death)
  Sender: FDA-Public Use
  Company Number: HR-GE HEALTHCARE MEDICAL DIAGNOSTICS-OMPQ-PR-1412L-1597

PATIENT
  Age: 56 Year
  Sex: Female

DRUGS (2)
  1. OMNIPAQUE [Suspect]
     Active Substance: IOHEXOL
     Indication: BILE DUCT STONE
  2. OMNIPAQUE [Suspect]
     Active Substance: IOHEXOL
     Indication: DIAGNOSTIC PROCEDURE

REACTIONS (3)
  - Air embolism [Fatal]
  - Sudden cardiac death [Fatal]
  - Ventricular fibrillation [Fatal]
